FAERS Safety Report 4961645-3 (Version None)
Quarter: 2006Q1

REPORT INFORMATION
  Report Type: 
  Country: None (occurrence: None)
  Receive Date: 20060329
  Receipt Date: 20060314
  Transmission Date: 20060701
  Serious: Yes (Other)
  Sender: FDA-Public Use
  Company Number: 2006EU000882

PATIENT
  Sex: Female

DRUGS (1)
  1. PROTOPIC [Suspect]
     Dosage: TRANSPLACENTAL
     Route: 064

REACTIONS (5)
  - CONGENITAL HAND MALFORMATION [None]
  - DRUG EXPOSURE BEFORE PREGNANCY [None]
  - DRUG EXPOSURE DURING PREGNANCY [None]
  - FOETAL GROWTH RETARDATION [None]
  - MULTIPLE CONGENITAL ABNORMALITIES [None]
